FAERS Safety Report 8561655-3 (Version None)
Quarter: 2012Q3

REPORT INFORMATION
  Report Type: 
  Country: None (occurrence: None)
  Receive Date: 20120802
  Receipt Date: 20120720
  Transmission Date: 20120928
  Serious: No
  Sender: FDA-Public Use
  Company Number: US-ASTRAZENECA-2012SE51383

PATIENT
  Age: 15 Year
  Sex: Male
  Weight: 59 kg

DRUGS (1)
  1. SEROQUEL [Suspect]
     Dosage: SAME DOSE IN THE MORNING AND AT NOON AND MORE AT NIGHT TIME
     Route: 048
     Dates: start: 20110701

REACTIONS (7)
  - MOOD SWINGS [None]
  - AGGRESSION [None]
  - INSOMNIA [None]
  - ABNORMAL BEHAVIOUR [None]
  - CRYING [None]
  - WEIGHT INCREASED [None]
  - ANGER [None]
